FAERS Safety Report 6070233-X (Version None)
Quarter: 2009Q1

REPORT INFORMATION
  Report Type: 
  Country: None (occurrence: None)
  Receive Date: 20090209
  Receipt Date: 20090127
  Transmission Date: 20090719
  Serious: Yes (Hospitalization, Disabling, Other)
  Sender: FDA-Public Use
  Company Number: US-ROCHE-552248

PATIENT
  Sex: Female
  Weight: 90.7 kg

DRUGS (3)
  1. ACCUTANE [Suspect]
     Indication: ACNE
     Route: 065
     Dates: start: 20001101, end: 20010101
  2. ACCUTANE [Suspect]
     Dosage: 40 MG, 80 MG, 40 MG
     Route: 065
     Dates: start: 20010102, end: 20010219
  3. ACCUTANE [Suspect]
     Route: 065
     Dates: start: 20010220, end: 20010320

REACTIONS (11)
  - ARTHRALGIA [None]
  - COLITIS ULCERATIVE [None]
  - CROHN'S DISEASE [None]
  - DEPRESSION [None]
  - DRY SKIN [None]
  - HEADACHE [None]
  - ILL-DEFINED DISORDER [None]
  - INFLAMMATORY BOWEL DISEASE [None]
  - LIP DRY [None]
  - METABOLIC SYNDROME [None]
  - OSTEOPENIA [None]
